FAERS Safety Report 5022522-5 (Version None)
Quarter: 2006Q2

REPORT INFORMATION
  Report Type: 
  Country: None (occurrence: None)
  Receive Date: 20060501
  Receipt Date: 20051107
  Transmission Date: 20061013
  Serious: Yes (Other)
  Sender: FDA-Public Use
  Company Number: 006006

PATIENT
  Sex: Female

DRUGS (3)
  1. CENESTIN [Suspect]
     Dosage: ORAL
     Route: 048
  2. PREMPRO [Suspect]
     Dosage: ORAL
     Route: 048
  3. PROMETRIUM [Suspect]
     Dosage: ORAL
     Route: 048

REACTIONS (1)
  - BREAST CANCER [None]
